FAERS Safety Report 10036199 (Version 2)
Quarter: 2014Q2

REPORT INFORMATION
  Report Type: Spontaneous
  Country: US (occurrence: US)
  Receive Date: 20140325
  Receipt Date: 20140507
  Transmission Date: 20141212
  Serious: Yes (Other)
  Sender: FDA-Public Use
  Company Number: US-PFIZER INC-2014081157

PATIENT
  Age: 45 Year
  Sex: Male
  Weight: 111 kg

DRUGS (10)
  1. NEURONTIN [Suspect]
     Indication: RESTLESS LEGS SYNDROME
     Dosage: 300 MG, 2X/DAY
     Route: 048
     Dates: start: 2007
  2. NEURONTIN [Suspect]
     Indication: ANXIETY
     Dosage: 300MG 1-2
     Route: 048
     Dates: start: 20140314, end: 20140321
  3. SEROQUEL [Concomitant]
     Dosage: 300 MG 2 1/2 (ILLEGIBLE) 150 BID
  4. SEROQUEL [Concomitant]
     Dosage: 600 MG, 3X/DAY
     Dates: start: 20131025
  5. CYMBALTA [Concomitant]
     Dosage: 60 MG, UNK
     Dates: start: 20131025
  6. LEVOTHYROXINE [Concomitant]
     Dosage: UNK
  7. METFORMIN [Concomitant]
     Dosage: UNK
  8. AMLODIPINE [Concomitant]
     Dosage: UNK
  9. BYSTOLIC [Concomitant]
     Dosage: UNK
  10. INDERAL [Concomitant]
     Dosage: 10 G, 3X/DAY
     Dates: start: 20131025

REACTIONS (8)
  - Off label use [Unknown]
  - Bipolar disorder [Unknown]
  - Cerebrovascular accident [Unknown]
  - Haemorrhage [Recovered/Resolved]
  - Cardiac failure [Unknown]
  - Large intestine polyp [Unknown]
  - Bone disorder [Unknown]
  - Epistaxis [Recovered/Resolved]
